FAERS Safety Report 16428266 (Version 1)
Quarter: 2019Q2

REPORT INFORMATION
  Report Type: Spontaneous
  Country: CA (occurrence: CA)
  Receive Date: 20190613
  Receipt Date: 20190613
  Transmission Date: 20190711
  Serious: Yes (Hospitalization)
  Sender: FDA-Public Use
  Company Number: CA-ACTELION-A-US2019-191054

PATIENT
  Age: 49 Year
  Sex: Male

DRUGS (5)
  1. IRON [Concomitant]
     Active Substance: IRON
  2. FUROSEMIDE. [Concomitant]
     Active Substance: FUROSEMIDE
  3. VOLIBRIS [Concomitant]
     Active Substance: AMBRISENTAN
     Dosage: UNK
     Dates: start: 20170701
  4. ADCIRCA [Concomitant]
     Active Substance: TADALAFIL
  5. CARIPUL [Suspect]
     Active Substance: EPOPROSTENOL
     Indication: PULMONARY ARTERIAL HYPERTENSION
     Dosage: 3000 NG
     Route: 042
     Dates: start: 20150310

REACTIONS (3)
  - Thrombosis in device [Unknown]
  - Vascular device infection [Unknown]
  - Feeling cold [Unknown]

NARRATIVE: CASE EVENT DATE: 201905
